FAERS Safety Report 4508925-3 (Version None)
Quarter: 2004Q4

REPORT INFORMATION
  Report Type: 
  Country: None (occurrence: None)
  Receive Date: 20041123
  Receipt Date: 20040520
  Transmission Date: 20050328
  Serious: Yes (Other)
  Sender: FDA-Public Use
  Company Number: JP-GLAXOSMITHKLINE-B0333448A

PATIENT
  Age: 76 Year
  Sex: Male
  Weight: 66 kg

DRUGS (5)
  1. VALTREX [Suspect]
     Indication: HERPES ZOSTER
     Dosage: 500MG TWICE PER DAY
     Route: 048
     Dates: start: 20040517, end: 20040520
  2. NU-LOTAN [Concomitant]
     Indication: HYPERTENSION
     Dosage: 50MG PER DAY
     Route: 048
     Dates: start: 20040517, end: 20040519
  3. ZYLORIC [Concomitant]
     Indication: HYPERURICAEMIA
     Dosage: 100MG PER DAY
     Route: 048
     Dates: end: 20040519
  4. JUVELA NICOTINATE [Concomitant]
     Indication: HYPERLIPIDAEMIA
     Dosage: 300MG PER DAY
     Route: 048
     Dates: end: 20040519
  5. TANKARU [Concomitant]
     Indication: HYPERPHOSPHATAEMIA
     Dosage: 3G PER DAY
     Route: 048
     Dates: end: 20040519

REACTIONS (5)
  - DELIRIUM [None]
  - DEPRESSED LEVEL OF CONSCIOUSNESS [None]
  - HALLUCINATION [None]
  - PARALYSIS [None]
  - PERITONEAL DIALYSIS [None]
